FAERS Safety Report 13492126 (Version 4)
Quarter: 2021Q1

REPORT INFORMATION
  Report Type: Report from Study
  Country: AR (occurrence: AR)
  Receive Date: 20170427
  Receipt Date: 20210320
  Transmission Date: 20210419
  Serious: Yes (Hospitalization, Other)
  Sender: FDA-Public Use
  Company Number: PHHY2017AR061632

PATIENT
  Age: 13 Year
  Sex: Male

DRUGS (3)
  1. ILARIS [Suspect]
     Active Substance: CANAKINUMAB
     Dosage: 1 DF, ONCE EVERY 21 DAYS
     Route: 065
  2. ILARIS [Suspect]
     Active Substance: CANAKINUMAB
     Indication: STILL^S DISEASE
     Dosage: 1 DF, QMO
     Route: 065
     Dates: start: 20130617
  3. ILARIS [Suspect]
     Active Substance: CANAKINUMAB
     Dosage: 150 MG, QMO
     Route: 065
     Dates: start: 20131127

REACTIONS (10)
  - Bacterial infection [Recovering/Resolving]
  - Pyrexia [Recovering/Resolving]
  - Blood disorder [Recovering/Resolving]
  - Haemophagocytic lymphohistiocytosis [Recovering/Resolving]
  - Product dose omission issue [Unknown]
  - Fall [Recovering/Resolving]
  - Arthralgia [Recovering/Resolving]
  - Haemarthrosis [Recovering/Resolving]
  - Juvenile idiopathic arthritis [Recovering/Resolving]
  - Joint injury [Recovering/Resolving]

NARRATIVE: CASE EVENT DATE: 20200603
